FAERS Safety Report 6155070-X (Version None)
Quarter: 2009Q2

REPORT INFORMATION
  Report Type: 
  Country: None (occurrence: None)
  Receive Date: 20090410
  Receipt Date: 20090402
  Transmission Date: 20091009
  Serious: Yes (Other)
  Sender: FDA-Public Use
  Company Number: LTI2009A00093

PATIENT
  Age: 60 Year
  Sex: Male

DRUGS (4)
  1. OGASTORO 30 MG(LANSOPRAZOLE) (TABLETS) [Suspect]
     Dosage: 30 MG (30 MG,1 IN 1 D) ORAL
     Route: 048
     Dates: start: 20090301, end: 20090301
  2. NEXEN(NIMESULIDE) [Concomitant]
  3. EZETIMIBE [Concomitant]
  4. PROPRANOLOL [Concomitant]

REACTIONS (1)
  - ALOPECIA TOTALIS [None]
